FAERS Safety Report 8002038-4 (Version None)
Quarter: 2011Q4

REPORT INFORMATION
  Report Type: 
  Country: None (occurrence: None)
  Receive Date: 20111222
  Receipt Date: 20111212
  Transmission Date: 20120403
  Serious: Yes (Life-Threatening, Hospitalization, Other)
  Sender: FDA-Public Use
  Company Number: AT-ABBOTT-11P-009-0882685-00

PATIENT
  Sex: Female

DRUGS (4)
  1. HUMIRA [Suspect]
     Indication: CROHN'S DISEASE
     Route: 058
     Dates: start: 20080311
  2. HUMIRA [Suspect]
     Route: 058
     Dates: start: 20080610
  3. BUDESONIDE [Concomitant]
     Indication: CROHN'S DISEASE
     Dates: start: 20070614
  4. MESALAMINE [Concomitant]
     Indication: CROHN'S DISEASE
     Dates: start: 20070723

REACTIONS (3)
  - SEPSIS [None]
  - FISTULA [None]
  - ABSCESS [None]
